FAERS Safety Report 24592095 (Version 1)
Quarter: 2024Q4

REPORT INFORMATION
  Report Type: Spontaneous
  Country: AU (occurrence: AU)
  Receive Date: 20241108
  Receipt Date: 20241108
  Transmission Date: 20250115
  Serious: Yes (Other)
  Sender: ROCHE
  Company Number: AU-ROCHE-10000121520

PATIENT
  Sex: Female

DRUGS (1)
  1. OCREVUS [Suspect]
     Active Substance: OCRELIZUMAB
     Indication: Relapsing-remitting multiple sclerosis
     Route: 065

REACTIONS (5)
  - Vaginal infection [Unknown]
  - Pelvic infection [Unknown]
  - Vulvovaginal pain [Unknown]
  - Intestinal perforation [Unknown]
  - Intestinal gangrene [Unknown]
